FAERS Safety Report 6179741-4 (Version None)
Quarter: 2009Q2

REPORT INFORMATION
  Report Type: 
  Country: None (occurrence: None)
  Receive Date: 20090505
  Receipt Date: 20090427
  Transmission Date: 20091009
  Serious: Yes (Hospitalization)
  Sender: FDA-Public Use
  Company Number: IT-WYE-H09049309

PATIENT
  Sex: Male

DRUGS (9)
  1. CORDARONE [Suspect]
     Indication: ATRIAL FIBRILLATION
     Route: 048
     Dates: start: 20070101, end: 20090330
  2. COUMADIN [Concomitant]
     Dosage: DOSE AND FREQUENCY NOT SPECIFIED
     Route: 048
  3. SEACOR [Concomitant]
     Route: 048
  4. LUVION [Concomitant]
     Dosage: DOSE AND FREQUENCY NOT SPECIFIED
     Route: 048
  5. VALSARTAN [Concomitant]
     Route: 048
  6. ZYLORIC [Concomitant]
     Route: 048
  7. BISOPROLOL FUMARATE [Concomitant]
     Route: 048
  8. SINVACOR [Suspect]
     Indication: ISCHAEMIC CARDIOMYOPATHY
     Route: 048
     Dates: start: 20070101, end: 20090330
  9. LASIX [Concomitant]
     Dosage: 1 UNIT EVERY 1 DAY

REACTIONS (4)
  - BLOOD CREATINE PHOSPHOKINASE INCREASED [None]
  - GAIT DISTURBANCE [None]
  - PERIPHERAL SENSORIMOTOR NEUROPATHY [None]
  - TRANSAMINASES INCREASED [None]
